FAERS Safety Report 9145799 (Version 2)
Quarter: 2013Q1

REPORT INFORMATION
  Report Type: Spontaneous
  Country: CA (occurrence: CA)
  Receive Date: 20130307
  Receipt Date: 20130311
  Transmission Date: 20140127
  Serious: Yes (Death)
  Sender: FDA-Public Use
  Company Number: PHHY2013CA022123

PATIENT
  Sex: Male

DRUGS (1)
  1. SANDOSTATIN LAR [Suspect]
     Indication: NEUROENDOCRINE TUMOUR
     Dosage: 20 MG, ONCE A MONTH
     Route: 030
     Dates: start: 20130206, end: 20130206

REACTIONS (3)
  - Infection [Fatal]
  - Sepsis [Fatal]
  - Neuroendocrine tumour [Fatal]
